FAERS Safety Report 7854016-3 (Version None)
Quarter: 2011Q4

REPORT INFORMATION
  Report Type: 
  Country: None (occurrence: None)
  Receive Date: 20111026
  Receipt Date: 20111019
  Transmission Date: 20120403
  Serious: Yes (Other)
  Sender: FDA-Public Use
  Company Number: US-SANOFI-AVENTIS-2011SA069249

PATIENT
  Age: 59 Year
  Sex: Female

DRUGS (7)
  1. PLAQUENIL [Suspect]
     Route: 048
  2. PLAQUENIL [Suspect]
     Route: 048
  3. HUMIRA [Suspect]
     Indication: RHEUMATOID ARTHRITIS
     Route: 065
     Dates: start: 20110517
  4. AMLODIPINE [Concomitant]
  5. PREDNISONE [Concomitant]
     Indication: RHEUMATOID ARTHRITIS
  6. OMEPRAZOLE [Concomitant]
  7. HYDROCODONE BITARTRATE AND ACETAMINOPHEN [Concomitant]
     Indication: PAIN
     Dosage: 5/500 TWICE DAILY AS NEEDED

REACTIONS (11)
  - OPERATIVE HAEMORRHAGE [None]
  - ANAEMIA [None]
  - ARTHRITIS [None]
  - FATIGUE [None]
  - INJECTION SITE SWELLING [None]
  - ARTHRALGIA [None]
  - INJECTION SITE PAIN [None]
  - INJECTION SITE DISCOLOURATION [None]
  - PAIN IN EXTREMITY [None]
  - INJECTION SITE PRURITUS [None]
  - INJECTION SITE ERYTHEMA [None]
